FAERS Safety Report 11573065 (Version 2)
Quarter: 2016Q4

REPORT INFORMATION
  Report Type: Spontaneous
  Country: US (occurrence: US)
  Receive Date: 20150929
  Receipt Date: 20161118
  Transmission Date: 20170206
  Serious: No
  Sender: FDA-Public Use
  Company Number: US-TAKEDA-2015TUS013009

PATIENT
  Sex: Female

DRUGS (1)
  1. DEXILANT [Suspect]
     Active Substance: DEXLANSOPRAZOLE
     Indication: GASTROOESOPHAGEAL REFLUX DISEASE
     Dosage: 60 MG, QD
     Route: 048

REACTIONS (3)
  - Myalgia [Unknown]
  - Arthralgia [Unknown]
  - Muscle spasms [Unknown]
